FAERS Safety Report 9015980 (Version 2)
Quarter: 2013Q1

REPORT INFORMATION
  Report Type: Spontaneous
  Country: US (occurrence: US)
  Receive Date: 20130116
  Receipt Date: 20130125
  Transmission Date: 20140127
  Serious: Yes (Death, Hospitalization)
  Sender: FDA-Public Use
  Company Number: PHEH2013US001115

PATIENT
  Sex: Female

DRUGS (1)
  1. SANDOSTATIN LAR DEPOT [Suspect]
     Dosage: 30 MG, UNK

REACTIONS (4)
  - Multi-organ failure [Fatal]
  - Renal failure acute [Fatal]
  - Cardiac failure congestive [Fatal]
  - General physical health deterioration [Fatal]
